FAERS Safety Report 16183695 (Version 1)
Quarter: 2019Q2

REPORT INFORMATION
  Report Type: Spontaneous
  Country: DE (occurrence: DE)
  Receive Date: 20190411
  Receipt Date: 20190411
  Transmission Date: 20190711
  Serious: Yes (Other)
  Sender: FDA-Public Use
  Company Number: DE-GLAXOSMITHKLINE-DE2019064917

PATIENT
  Sex: Male

DRUGS (2)
  1. NICORETTE [Suspect]
     Active Substance: NICOTINE
     Indication: SMOKING CESSATION THERAPY
     Dosage: UNK
     Route: 048
  2. RAMILICH [Concomitant]
     Active Substance: RAMIPRIL
     Indication: HYPERTENSION
     Dosage: DOSAGE FORM: UNSPECIFIED
     Route: 065

REACTIONS (6)
  - Dyspepsia [Not Recovered/Not Resolved]
  - Abdominal discomfort [Not Recovered/Not Resolved]
  - Adverse event [Not Recovered/Not Resolved]
  - Intentional product use issue [Unknown]
  - Diarrhoea [Not Recovered/Not Resolved]
  - Nephrolithiasis [Not Recovered/Not Resolved]
